FAERS Safety Report 23237586 (Version 3)
Quarter: 2024Q1

REPORT INFORMATION
  Report Type: Spontaneous
  Country: SE (occurrence: SE)
  Receive Date: 20231128
  Receipt Date: 20240129
  Transmission Date: 20240409
  Serious: Yes (Other)
  Sender: FDA-Public Use
  Company Number: SE-BEH-2023165739

PATIENT
  Sex: Male

DRUGS (3)
  1. HIZENTRA [Suspect]
     Active Substance: HUMAN IMMUNOGLOBULIN G
     Indication: Immunodeficiency common variable
     Dosage: 70 MILLILITER, QW DIVIDED ON 2 OCCASIONS (WEDNESDAYS AND SUNDAYS)
     Route: 065
     Dates: start: 20221027, end: 20230331
  2. HIZENTRA [Suspect]
     Active Substance: HUMAN IMMUNOGLOBULIN G
     Indication: Good syndrome
     Dosage: UNK
     Route: 065
     Dates: start: 20221226
  3. HIZENTRA [Suspect]
     Active Substance: HUMAN IMMUNOGLOBULIN G
     Dosage: UNK
     Route: 065
     Dates: start: 20221228

REACTIONS (6)
  - Renal failure [Unknown]
  - Pyrexia [Unknown]
  - Pyrexia [Unknown]
  - Platelet count decreased [Unknown]
  - Blood creatinine increased [Recovering/Resolving]
  - Viral infection [Unknown]

NARRATIVE: CASE EVENT DATE: 20221201
